FAERS Safety Report 4357723-2 (Version None)
Quarter: 2004Q2

REPORT INFORMATION
  Report Type: 
  Country: None (occurrence: None)
  Receive Date: 20040513
  Receipt Date: 20040430
  Transmission Date: 20050107
  Serious: Yes (Death)
  Sender: FDA-Public Use
  Company Number: GB-GLAXOSMITHKLINE-B0331915A

PATIENT

DRUGS (3)
  1. AVANDIA [Suspect]
     Route: 065
  2. METFORMIN HCL [Concomitant]
     Route: 065
  3. SULPHONYLUREA [Concomitant]
     Route: 065

REACTIONS (1)
  - DEATH [None]
